FAERS Safety Report 25303777 (Version 2)
Quarter: 2025Q2

REPORT INFORMATION
  Report Type: Report from Study
  Country: CN (occurrence: CN)
  Receive Date: 20250513
  Receipt Date: 20250515
  Transmission Date: 20250717
  Serious: Yes (Death, Life-Threatening)
  Sender: ROCHE
  Company Number: CN-ROCHE-10000280386

PATIENT
  Age: 70 Year
  Sex: Male
  Weight: 74 kg

DRUGS (1)
  1. COLUMVI [Suspect]
     Active Substance: GLOFITAMAB-GXBM
     Indication: Diffuse large B-cell lymphoma
     Route: 042
     Dates: start: 20250508

REACTIONS (2)
  - Cytokine release syndrome [Fatal]
  - Shock [Not Recovered/Not Resolved]

NARRATIVE: CASE EVENT DATE: 20250508
